FAERS Safety Report 22181339 (Version 4)
Quarter: 2024Q1

REPORT INFORMATION
  Report Type: Spontaneous
  Country: US (occurrence: US)
  Receive Date: 20230406
  Receipt Date: 20240109
  Transmission Date: 20240410
  Serious: No
  Sender: FDA-Public Use
  Company Number: US-PFIZER INC-PV202300062754

PATIENT
  Age: 87 Year
  Sex: Female
  Weight: 57.61 kg

DRUGS (2)
  1. IBRANCE [Suspect]
     Active Substance: PALBOCICLIB
     Indication: Breast cancer
     Dosage: 100 MG
  2. IBRANCE [Suspect]
     Active Substance: PALBOCICLIB
     Dosage: TAKES ONCE PER DAY FOR THREE WEEKS ON AND ONE WEEK OFF BY MOUTH
     Route: 048

REACTIONS (2)
  - Mental disorder [Unknown]
  - Alopecia [Not Recovered/Not Resolved]
